FAERS Safety Report 5592361-5 (Version None)
Quarter: 2008Q1

REPORT INFORMATION
  Report Type: 
  Country: None (occurrence: None)
  Receive Date: 20080115
  Receipt Date: 20080103
  Transmission Date: 20080703
  Serious: Yes (Other)
  Sender: FDA-Public Use
  Company Number: US-PFIZER INC-2008001812

PATIENT
  Sex: Female
  Weight: 38.181 kg

DRUGS (7)
  1. CHANTIX [Suspect]
     Indication: SMOKING CESSATION THERAPY
     Dates: start: 20071201, end: 20080101
  2. SPIRIVA [Concomitant]
  3. OXYGEN [Concomitant]
  4. PAXIL [Concomitant]
  5. NORVASC [Concomitant]
  6. SYMBICORT [Concomitant]
  7. COMBIVENT [Concomitant]

REACTIONS (4)
  - HYPERSOMNIA [None]
  - NAUSEA [None]
  - SOMNOLENCE [None]
  - WRONG TECHNIQUE IN DRUG USAGE PROCESS [None]
